FAERS Safety Report 16158710 (Version 5)
Quarter: 2019Q3

REPORT INFORMATION
  Report Type: Spontaneous
  Country: US (occurrence: US)
  Receive Date: 20190404
  Receipt Date: 20190726
  Transmission Date: 20191004
  Serious: Yes (Hospitalization, Other)
  Sender: FDA-Public Use
  Company Number: US-GW PHARMA-201904USGW0864

PATIENT

DRUGS (8)
  1. VIMPAT [Concomitant]
     Active Substance: LACOSAMIDE
     Indication: PRODUCT USED FOR UNKNOWN INDICATION
     Dosage: UNK
     Route: 065
  2. EPIDIOLEX [Suspect]
     Active Substance: CANNABIDIOL
     Indication: LENNOX-GASTAUT SYNDROME
     Dosage: 11.98MG/KG, 100 MILLIGRAM, BID
     Route: 048
     Dates: start: 20190109, end: 2019
  3. KITABIS PAK [Concomitant]
     Active Substance: TOBRAMYCIN
     Indication: HYPOXIA
  4. KITABIS PAK [Concomitant]
     Active Substance: TOBRAMYCIN
     Indication: CHRONIC RESPIRATORY FAILURE
     Dosage: 300 MILLIGRAM, BID (28 DAYS ON, 28 DAYS OFF)
     Dates: start: 20190212
  5. KITABIS PAK [Concomitant]
     Active Substance: TOBRAMYCIN
     Indication: HYPOCAPNIA
  6. EPIDIOLEX [Suspect]
     Active Substance: CANNABIDIOL
     Dosage: 15 MG/KG/DAY, 120 MILLIGRAM, BID
     Route: 048
     Dates: start: 20190314
  7. CLOBAZAM. [Concomitant]
     Active Substance: CLOBAZAM
     Indication: PRODUCT USED FOR UNKNOWN INDICATION
     Dosage: UNK
     Route: 065
  8. PHENOBARBITAL. [Concomitant]
     Active Substance: PHENOBARBITAL
     Indication: PRODUCT USED FOR UNKNOWN INDICATION
     Dosage: UNK
     Route: 065

REACTIONS (5)
  - Product dose omission [Unknown]
  - Product dose omission [Unknown]
  - Seizure [Recovering/Resolving]
  - Respiratory disorder [Not Recovered/Not Resolved]
  - Wheezing [Recovered/Resolved]

NARRATIVE: CASE EVENT DATE: 20190313
